FAERS Safety Report 8608786 (Version 2)
Quarter: 2012Q4

REPORT INFORMATION
  Report Type: 
  Country: MA (occurrence: MA)
  Receive Date: 20120611
  Receipt Date: 20120912
  Transmission Date: 20130627
  Serious: Yes (Death)
  Sender: FDA-Public Use
  Company Number: MA-CELGENEUS-110-20785-12053450

PATIENT
  Age: 50 Year
  Sex: Female

DRUGS (3)
  1. THALIDOMIDE [Suspect]
     Indication: MULTIPLE MYELOMA
     Route: 048
  2. CYCLOPHOSPHAMID [Concomitant]
     Indication: MULTIPLE MYELOMA
     Route: 065
  3. DEXAMETHASONE [Concomitant]
     Indication: MULTIPLE MYELOMA
     Route: 065

REACTIONS (1)
  - Respiratory failure [Fatal]
